FAERS Safety Report 17941854 (Version 3)
Quarter: 2020Q3

REPORT INFORMATION
  Report Type: Spontaneous
  Country: US (occurrence: US)
  Receive Date: 20200624
  Receipt Date: 20200708
  Transmission Date: 20201103
  Serious: Yes (Other)
  Sender: FDA-Public Use
  Company Number: US-AMGEN-USA-2016055747

PATIENT
  Age: 55 Year
  Sex: Female

DRUGS (7)
  1. METOPROLOL. [Concomitant]
     Active Substance: METOPROLOL
     Indication: HYPERTENSION
     Dosage: UNK
     Route: 065
     Dates: start: 2013
  2. OTEZLA [Suspect]
     Active Substance: APREMILAST
     Indication: PSORIASIS
     Dosage: (LOWER DOSAGE), UNK
     Route: 048
  3. OTEZLA [Suspect]
     Active Substance: APREMILAST
     Indication: PSORIATIC ARTHROPATHY
     Dosage: UNK
     Route: 065
     Dates: start: 20180808, end: 20181016
  4. GABAPENTIN. [Concomitant]
     Active Substance: GABAPENTIN
     Indication: PSORIATIC ARTHROPATHY
     Dosage: UNK
     Route: 065
     Dates: start: 20160509
  5. GABAPENTIN. [Concomitant]
     Active Substance: GABAPENTIN
     Indication: PSORIASIS
  6. MELOXICAM. [Concomitant]
     Active Substance: MELOXICAM
     Indication: HYPERTENSION
     Dosage: UNK
     Route: 065
     Dates: start: 20160509
  7. OTEZLA [Suspect]
     Active Substance: APREMILAST
     Indication: RHEUMATOID ARTHRITIS
     Dosage: 30 MILLIGRAM, BID
     Route: 048
     Dates: start: 201502

REACTIONS (5)
  - Psoriatic arthropathy [Not Recovered/Not Resolved]
  - Nausea [Recovered/Resolved]
  - Eructation [Recovered/Resolved]
  - Thyroid operation [Unknown]
  - Dyspepsia [Not Recovered/Not Resolved]

NARRATIVE: CASE EVENT DATE: 20160509
